FAERS Safety Report 6601519-5 (Version None)
Quarter: 2010Q1

REPORT INFORMATION
  Report Type: 
  Country: None (occurrence: None)
  Receive Date: 20100225
  Receipt Date: 20100219
  Transmission Date: 20100710
  Serious: Yes (Hospitalization, Other)
  Sender: FDA-Public Use
  Company Number: GB-TEVA-225110ISR

PATIENT
  Age: 81 Year
  Sex: Male
  Weight: 94 kg

DRUGS (2)
  1. PREDNISOLONE [Suspect]
     Indication: PEMPHIGOID
     Route: 048
     Dates: start: 20090401
  2. RIVAROXABAN [Suspect]
     Indication: THROMBOSIS PROPHYLAXIS
     Route: 048
     Dates: start: 20091216, end: 20100118

REACTIONS (2)
  - FALL [None]
  - HAEMOGLOBIN DECREASED [None]
